FAERS Safety Report 10178004 (Version 2)
Quarter: 2016Q3

REPORT INFORMATION
  Report Type: Report from Study
  Country: US (occurrence: US)
  Receive Date: 20140517
  Receipt Date: 20160810
  Transmission Date: 20161108
  Serious: Yes (Other)
  Sender: FDA-Public Use
  Company Number: US-ROCHE-1401488

PATIENT
  Sex: Male
  Weight: 38.2 kg

DRUGS (14)
  1. LEVOTHYROXINE SODIUM. [Concomitant]
     Active Substance: LEVOTHYROXINE SODIUM
  2. ERGOCALCIFEROL. [Concomitant]
     Active Substance: ERGOCALCIFEROL
     Dosage: FOR 6 DOSES, DO NOT TAKE WITHIN 4 HOURS OF OTHER MEDICATIONS.
     Route: 048
  3. VITAMIN D3 [Concomitant]
     Active Substance: CHOLECALCIFEROL
     Dosage: DO NOT TAKE WITHIN 4 HOURS OF OTHER MEDICATIONS, CAN TAKE WITH FOOD
     Route: 048
  4. PREDNISONE. [Concomitant]
     Active Substance: PREDNISONE
     Dosage: FOR 3 DAYS
     Route: 048
  5. NUTROPIN AQ [Suspect]
     Active Substance: SOMATROPIN
     Route: 058
     Dates: start: 201101
  6. NUTROPIN AQ [Suspect]
     Active Substance: SOMATROPIN
     Route: 058
  7. DELTASONE (UNITED STATES) [Concomitant]
     Dosage: 3 TABLETS PER DAY FOR 3 DAYS AND 2 TABLETS FOR 3 DAYS THEN 1 TABLET DAILY FOR 3 DAYS
     Route: 048
  8. NUTROPIN AQ [Suspect]
     Active Substance: SOMATROPIN
     Indication: BODY HEIGHT BELOW NORMAL
     Route: 058
  9. PREDNISONE. [Concomitant]
     Active Substance: PREDNISONE
     Dosage: FOR 3 DAYS
     Route: 048
  10. SYNTHROID [Concomitant]
     Active Substance: LEVOTHYROXINE SODIUM
     Dosage: TAKE ONE TABLET EVERY OTHER DAY ON ALTERNATE DAYS 1 AND 1/2 TABLETS AS DIRECTED
     Route: 065
  11. MIRALAX [Concomitant]
     Active Substance: POLYETHYLENE GLYCOL 3350
  12. INSULIN [Concomitant]
     Active Substance: INSULIN NOS
     Route: 065
  13. POLYETHYLENE GLYCOL [Concomitant]
     Active Substance: POLYETHYLENE GLYCOLS
  14. PREDNISONE. [Concomitant]
     Active Substance: PREDNISONE
     Dosage: FOR 3 DAYS
     Route: 048

REACTIONS (6)
  - Constipation [Unknown]
  - Visual impairment [Unknown]
  - Skin odour abnormal [Unknown]
  - Atopy [Unknown]
  - Blood thyroid stimulating hormone decreased [Unknown]
  - Headache [Unknown]
